FAERS Safety Report 24552251 (Version 1)
Quarter: 2024Q4

REPORT INFORMATION
  Report Type: Spontaneous
  Country: US (occurrence: US)
  Receive Date: 20241026
  Receipt Date: 20241026
  Transmission Date: 20250115
  Serious: Yes (Death, Hospitalization, Other)
  Sender: DR REDDYS
  Company Number: US-DRL-USA-LIT/USA/24/0015646

PATIENT
  Age: 64 Year
  Sex: Male

DRUGS (23)
  1. VALGANCICLOVIR [Suspect]
     Active Substance: VALGANCICLOVIR
     Indication: Cytomegalovirus infection
     Route: 048
     Dates: start: 202108, end: 202111
  2. VALGANCICLOVIR [Suspect]
     Active Substance: VALGANCICLOVIR
     Route: 048
     Dates: start: 20210824, end: 20211005
  3. VALGANCICLOVIR [Suspect]
     Active Substance: VALGANCICLOVIR
     Route: 048
     Dates: start: 20210503, end: 20210519
  4. CARFILZOMIB [Suspect]
     Active Substance: CARFILZOMIB
     Indication: Plasma cell myeloma
  5. TOCILIZUMAB [Suspect]
     Active Substance: TOCILIZUMAB
     Indication: Cytokine release syndrome
  6. CYCLOPHOSPHAMIDE [Suspect]
     Active Substance: CYCLOPHOSPHAMIDE
     Indication: Plasma cell myeloma
  7. LENALIDOMIDE [Suspect]
     Active Substance: LENALIDOMIDE
     Indication: Plasma cell myeloma
  8. DEXAMETHASONE [Suspect]
     Active Substance: DEXAMETHASONE
     Indication: Plasma cell myeloma
  9. DARATUMUMAB [Suspect]
     Active Substance: DARATUMUMAB
     Indication: Plasma cell myeloma
  10. POMALIDOMIDE [Suspect]
     Active Substance: POMALIDOMIDE
     Indication: Plasma cell myeloma
  11. THALIDOMIDE [Suspect]
     Active Substance: THALIDOMIDE
     Indication: Plasma cell myeloma
  12. FLUDARABINE [Concomitant]
     Active Substance: FLUDARABINE PHOSPHATE
     Indication: Lymphodepletion
     Dates: start: 202205
  13. FLUDARABINE [Concomitant]
     Active Substance: FLUDARABINE PHOSPHATE
     Indication: Chemotherapy
  14. IDECABTAGENE VICLEUCEL [Concomitant]
     Active Substance: IDECABTAGENE VICLEUCEL
     Indication: Lymphodepletion
  15. IDECABTAGENE VICLEUCEL [Concomitant]
     Active Substance: IDECABTAGENE VICLEUCEL
     Indication: Chemotherapy
  16. GANCICLOVIR [Concomitant]
     Active Substance: GANCICLOVIR
     Indication: Cytomegalovirus infection
     Dates: start: 20210824, end: 20211005
  17. LETERMOVIR [Concomitant]
     Active Substance: LETERMOVIR
     Indication: Cytomegalovirus infection
     Dosage: MAINTENANCE
     Dates: start: 20211005, end: 20220415
  18. LETERMOVIR [Concomitant]
     Active Substance: LETERMOVIR
     Dosage: NEGATIVE RESISTANCE GENOTYPE
     Dates: start: 20220614, end: 20220819
  19. LETERMOVIR [Concomitant]
     Active Substance: LETERMOVIR
     Dates: end: 20220829
  20. FOSCARNET [Concomitant]
     Active Substance: FOSCARNET
     Indication: Cytomegalovirus infection
     Dosage: INTRAVITREAL
     Route: 031
     Dates: start: 202108, end: 202111
  21. FOSCARNET [Concomitant]
     Active Substance: FOSCARNET
     Dosage: (STOPPED BECAUSE OF NEPHROTOXICITY)
     Dates: start: 20220402, end: 20230503
  22. FOSCARNET [Concomitant]
     Active Substance: FOSCARNET
     Dosage: (STOPPED BECAUSE OF NEPHROTOXICITY)
     Dates: start: 20220518, end: 20220614
  23. HUMAN IMMUNOGLOBULIN G [Concomitant]
     Active Substance: HUMAN IMMUNOGLOBULIN G
     Indication: Cytomegalovirus infection
     Dosage: 3 MONTHS
     Route: 042
     Dates: start: 202112, end: 202203

REACTIONS (3)
  - Cytomegalovirus infection reactivation [Fatal]
  - Plasma cell myeloma [Fatal]
  - Drug ineffective [Fatal]
